FAERS Safety Report 7604034-5 (Version None)
Quarter: 2011Q3

REPORT INFORMATION
  Report Type: 
  Country: None (occurrence: None)
  Receive Date: 20110712
  Receipt Date: 20110707
  Transmission Date: 20111222
  Serious: No
  Sender: FDA-Public Use
  Company Number: JP-JNJFOC-20110703666

PATIENT

DRUGS (3)
  1. FENTANYL-100 [Suspect]
     Dosage: 50 UG/R X 3 AND ONE PATCH OF 12.5 UG/HR
     Route: 062
  2. FENTANYL-100 [Suspect]
     Dosage: 50 UG/HR X 4
     Route: 062
     Dates: start: 20110706
  3. FENTANYL-100 [Suspect]
     Indication: PRODUCT USED FOR UNKNOWN INDICATION
     Dosage: 12.5 UG/HR X 4
     Route: 062
     Dates: start: 20110703

REACTIONS (2)
  - NAUSEA [None]
  - INAPPROPRIATE SCHEDULE OF DRUG ADMINISTRATION [None]
